FAERS Safety Report 16040660 (Version 2)
Quarter: 2019Q1

REPORT INFORMATION
  Report Type: Spontaneous
  Country: KR (occurrence: KR)
  Receive Date: 20190306
  Receipt Date: 20190308
  Transmission Date: 20190418
  Serious: Yes (Hospitalization)
  Sender: FDA-Public Use
  Company Number: KR-009507513-1902KOR005655

PATIENT
  Sex: Female

DRUGS (49)
  1. IRCODON [Concomitant]
     Active Substance: OXYCODONE HYDROCHLORIDE
     Dosage: QUANTITY: 15 (UNITS UNSPECIFIED), DAYS: 30
     Dates: start: 20190122
  2. IRCODON [Concomitant]
     Active Substance: OXYCODONE HYDROCHLORIDE
     Dosage: QUANTITY 3 (UNIT NOT REPORTED), DAYS: 2
     Route: 048
     Dates: start: 20190127, end: 20190131
  3. IRCODON [Concomitant]
     Active Substance: OXYCODONE HYDROCHLORIDE
     Dosage: QUANTITY 9 (UNIT NOT REPORTED), DAYS: 3
     Route: 048
     Dates: start: 20190128, end: 20190131
  4. IRCODON [Concomitant]
     Active Substance: OXYCODONE HYDROCHLORIDE
     Dosage: QUANTITY 11 (UNIT NOT REPORTED), DAYS: 30
     Route: 048
     Dates: start: 20190131
  5. MAGNESIN (MAGNESIUM SULFATE) [Concomitant]
     Dosage: QUANTITY1 (UNIT NOT REPORTED), DAYS: 1
     Dates: start: 20190127
  6. SUSPEN (ACETAMINOPHEN) [Concomitant]
     Dosage: SUSPEN 8HOURS ER TAB QUANTITY 1 (UNIT NOT REPORTED), DAYS: 1
     Dates: start: 20190128
  7. DUROGESIC [Concomitant]
     Active Substance: FENTANYL
     Dosage: 12 MICROGRAM (MCG)/H 5.25 CENTIMETRE SQUARE, QUANTITY:1, DAYS:1
     Dates: start: 20190107
  8. DUROGESIC [Concomitant]
     Active Substance: FENTANYL
     Dosage: 50 MICROGRAM/H 21 CENTIMETER SQUARE, QUANTITY: 1, DAYS:11
     Dates: start: 20190130
  9. CURAN [Concomitant]
     Active Substance: RANITIDINE HYDROCHLORIDE
     Dosage: QUANTITY 1 (UNIT NOT REPORTED), DAYS: 1
     Route: 048
     Dates: start: 20190131
  10. SYNTHYROXINE [Concomitant]
     Active Substance: LEVOTHYROXINE SODIUM
     Dosage: QUANTITY 1 (UNIT NOT REPORTED), DAYS: 2
     Route: 048
     Dates: start: 20190129, end: 20190130
  11. ABSTRAL [Concomitant]
     Active Substance: FENTANYL CITRATE
     Dosage: QUANTITY 1 (UNIT NOT REPORTED), DAYS: 2
     Dates: start: 20190127, end: 20190129
  12. LYRICA [Concomitant]
     Active Substance: PREGABALIN
     Dosage: QUANTITY: 2, DAYS: 30
     Dates: start: 20190222
  13. SYNTHYROXINE [Concomitant]
     Active Substance: LEVOTHYROXINE SODIUM
     Dosage: QUANTITY 2 (UNIT NOT REPORTED), DAYS: 1
     Route: 048
     Dates: start: 20190128
  14. CHLORPHENIRAMINE MALEATE. [Concomitant]
     Active Substance: CHLORPHENIRAMINE MALEATE
     Dosage: QUANITITY: 1 (UNITS NOT PROVIDED) AND DAYS: 1
     Dates: start: 20190221
  15. DEXTROSE. [Concomitant]
     Active Substance: DEXTROSE
     Dosage: STRENGTH: 5 %, QUANTITY: 1 (UNIT NOT PROVIDED), DAYS: 2
     Dates: start: 20190220, end: 20190222
  16. DUROGESIC [Concomitant]
     Active Substance: FENTANYL
     Dosage: 50 MICROGRAM/H 21 CENTIMETER SQUARE, QUANTITY: 1, DAYS:11
     Dates: start: 20190220, end: 20190222
  17. ABSTRAL [Concomitant]
     Active Substance: FENTANYL CITRATE
     Dosage: QUANTITY 6 (UNIT NOT REPORTED), DAYS: 30
     Dates: start: 20190131
  18. ABSTRAL [Concomitant]
     Active Substance: FENTANYL CITRATE
     Dosage: QUANTITY: 1 (UNITS NOT PROVIDED) AND DAYS: 3
     Dates: start: 20190219, end: 20190222
  19. NEURONTIN [Concomitant]
     Active Substance: GABAPENTIN
     Dosage: QUANTITY: 3, DAYS: 30
     Dates: start: 20190122
  20. CURAN [Concomitant]
     Active Substance: RANITIDINE HYDROCHLORIDE
     Dosage: QUANTITY 3 (UNIT NOT REPORTED), DAYS: 1
     Route: 048
     Dates: start: 20190128
  21. CURAN [Concomitant]
     Active Substance: RANITIDINE HYDROCHLORIDE
     Dosage: QUANTITY 2 (UNIT NOT REPORTED), DAYS: 32
     Route: 048
     Dates: start: 20190129, end: 20190131
  22. BESZYME [Concomitant]
     Dosage: QUANTITY 2 (UNIT NOT REPORTED), DAYS: 31
     Route: 048
     Dates: start: 20190130
  23. DEXTROSE. [Concomitant]
     Active Substance: DEXTROSE
     Dosage: 5% DEXTROSE QUANTITY 1 (UNIT NOT REPORTED), DAYS: 3
     Dates: start: 20190128, end: 20190131
  24. DEXTROSE. [Concomitant]
     Active Substance: DEXTROSE
     Dosage: STRENGTH: 5 %, QUANTITY: 2 (UNIT NOT PROVIDED), DAYS: 1
     Dates: start: 20190221
  25. KEYTRUDA [Suspect]
     Active Substance: PEMBROLIZUMAB
     Dosage: QUANTITY 2 (UNIT NOT REPORTED), DAYS: 1
     Dates: start: 20190128
  26. ABSTRAL [Concomitant]
     Active Substance: FENTANYL CITRATE
     Dosage: QUANTITY: 3 (UNITS NOT PROVIDED) AND DAYS: 2
     Route: 060
     Dates: start: 20190218, end: 20190221
  27. CETAMADOL [Concomitant]
     Dosage: QUANTITY 1 (UNIT NOT REPORTED), DAYS: 2
     Route: 048
     Dates: start: 20190127, end: 20190131
  28. CETAMADOL [Concomitant]
     Dosage: QUANTITY 3 (UNIT NOT REPORTED), DAYS: 33
     Route: 048
     Dates: start: 20190128, end: 20190131
  29. NEURONTIN [Concomitant]
     Active Substance: GABAPENTIN
     Dosage: QUANTITY 4 (UNIT NOT REPORTED), DAYS: 1
     Dates: start: 20190128
  30. NEURONTIN [Concomitant]
     Active Substance: GABAPENTIN
     Dosage: QUANTITY 3 (UNIT NOT REPORTED), DAYS: 32
     Dates: start: 20190129, end: 20190131
  31. LYRICA [Concomitant]
     Active Substance: PREGABALIN
     Dosage: QUANTITY 3 (UNIT NOT REPORTED), DAYS: 1
     Dates: start: 20190128
  32. CURAN [Concomitant]
     Active Substance: RANITIDINE HYDROCHLORIDE
     Dosage: QUANTITY: 2 (UNIT NOT PROVIDED) AND DAYS: 30
     Dates: start: 20190122
  33. BESZYME [Concomitant]
     Dosage: QUANTITY: 3, DAYS: 30
     Dates: start: 20190122
  34. BESZYME [Concomitant]
     Dosage: QUANTITY 3 (UNIT NOT REPORTED), DAYS: 2
     Route: 048
     Dates: start: 20190128, end: 20190129
  35. SODIUM CHLORIDE. [Concomitant]
     Active Substance: SODIUM CHLORIDE
     Dosage: JW NS INJ QUANTITY1 (UNIT NOT REPORTED), DAYS: 1
     Dates: start: 20190127
  36. HEPARIN SODIUM. [Concomitant]
     Active Substance: HEPARIN SODIUM
     Dosage: HUONS HEPARIN NA INJ QUANTITY 1 (UNIT NOT REPORTED), DAYS: 1
     Dates: start: 20190128
  37. NEURONTIN [Concomitant]
     Active Substance: GABAPENTIN
     Dosage: QUANTITY 1 (UNIT NOT REPORTED), DAYS: 1
     Dates: start: 20190131
  38. CURAN [Concomitant]
     Active Substance: RANITIDINE HYDROCHLORIDE
     Dosage: QUANTITY:1, DAYS: 2
     Dates: start: 20190218, end: 20190221
  39. CHLORPHENIRAMINE MALEATE. [Concomitant]
     Active Substance: CHLORPHENIRAMINE MALEATE
     Dosage: CHLORPHENIRAMINE MALEATE HUONS INJ QUANTITY1 (UNIT NOT REPORTED), DAYS: 1
     Dates: start: 20190127
  40. HEPARIN SODIUM. [Concomitant]
     Active Substance: HEPARIN SODIUM
     Dosage: QUANTITY: 5, DAYS: 1
     Dates: start: 20190222
  41. SODIUM CHLORIDE. [Concomitant]
     Active Substance: SODIUM CHLORIDE
     Dosage: JW NS INJ QUANTITY 3 (UNIT NOT REPORTED), DAYS: 1
     Dates: start: 20190128
  42. SODIUM CHLORIDE. [Concomitant]
     Active Substance: SODIUM CHLORIDE
     Dosage: QUANTITY 4 (UNITS NOT PROVIDED), DAYS REPORTED AS 1
     Dates: start: 20190221
  43. MORPHINE HYDROCHLORIDE [Concomitant]
     Active Substance: MORPHINE HYDROCHLORIDE
     Dosage: STRENGTH: 0.5 ML, QUANTITY: 2 (UNITS NOT PROVIDED), DAYS: 1
     Dates: start: 20190219
  44. KEYTRUDA [Suspect]
     Active Substance: PEMBROLIZUMAB
     Indication: ENDOMETRIAL CANCER
     Dosage: QUANTITY: 2 (UNITS NOT REPORTED), DAYS: 1
     Dates: start: 20190221
  45. LYRICA [Concomitant]
     Active Substance: PREGABALIN
     Dosage: QUANTITY 2 (UNIT NOT REPORTED), DAYS: 2
     Dates: start: 20190129, end: 20190130
  46. ELIQUIS [Concomitant]
     Active Substance: APIXABAN
     Dosage: QUANTITY 1 (UNIT NOT REPORTED), DAYS: 1
     Route: 048
     Dates: start: 20190128
  47. SODIUM CHLORIDE. [Concomitant]
     Active Substance: SODIUM CHLORIDE
     Dosage: JW NS INJ QUANTITY1 (UNIT NOT REPORTED), DAYS: 2
     Dates: start: 20190127, end: 20190128
  48. MORPHINE HYDROCHLORIDE [Concomitant]
     Active Substance: MORPHINE HYDROCHLORIDE
     Dosage: MYUNGMOON MORPHINE HCI QUANTITY 1 (UNIT NOT REPORTED), DAYS: 3
     Dates: start: 20190128, end: 20190131
  49. DUROGESIC [Concomitant]
     Active Substance: FENTANYL
     Dosage: 50 MICROGRAM/H 21 CENTIMETER SQUARE, QUANTITY: 10, DAYS:1
     Dates: start: 20190131

REACTIONS (4)
  - Adverse event [Unknown]
  - Product use in unapproved indication [Unknown]
  - Adverse event [Unknown]
  - Pelvic pain [Unknown]

NARRATIVE: CASE EVENT DATE: 201901
